FAERS Safety Report 5868289-X (Version None)
Quarter: 2008Q3

REPORT INFORMATION
  Report Type: 
  Country: None (occurrence: None)
  Receive Date: 20080903
  Receipt Date: 20080609
  Transmission Date: 20090109
  Serious: Yes (Hospitalization)
  Sender: FDA-Public Use
  Company Number: DE-SP-2008-01835

PATIENT
  Sex: Male

DRUGS (1)
  1. IMMUCYST [Suspect]
     Dosage: NOT REPORTED
     Route: 065

REACTIONS (4)
  - BLADDER NECROSIS [None]
  - GRANULOMA [None]
  - TUBERCULOSIS OF GENITOURINARY SYSTEM [None]
  - URGE INCONTINENCE [None]
